FAERS Safety Report 23612042 (Version 1)
Quarter: 2024Q1

REPORT INFORMATION
  Report Type: Spontaneous
  Country: US (occurrence: None)
  Receive Date: 20240308
  Receipt Date: 20240308
  Transmission Date: 20240410
  Serious: Yes (Hospitalization)
  Sender: FDA-Public Use
  Company Number: None

PATIENT
  Age: 75 Year
  Sex: Female
  Weight: 58.06 kg

DRUGS (1)
  1. METHENAMINE [Suspect]
     Active Substance: METHENAMINE
     Dosage: TWICE DAILY
     Dates: start: 20240124, end: 20240125

REACTIONS (5)
  - Urinary tract infection [None]
  - Malaise [None]
  - Vomiting [None]
  - Diarrhoea [None]
  - Dehydration [None]

NARRATIVE: CASE EVENT DATE: 20240202
